FAERS Safety Report 9133133 (Version 1)
Quarter: 2013Q1

REPORT INFORMATION
  Report Type: Spontaneous
  Country: US (occurrence: US)
  Receive Date: 20130107
  Receipt Date: 20130107
  Transmission Date: 20140127
  Serious: Yes (Other)
  Sender: FDA-Public Use
  Company Number: US-RB-048136-13

PATIENT
  Sex: Male

DRUGS (1)
  1. DELSYM [Suspect]
     Indication: DRUG ABUSE
     Dosage: ONE TIME ONLY INGESTION
     Route: 048
     Dates: start: 20121230

REACTIONS (1)
  - Drug abuse [Unknown]
